FAERS Safety Report 13094912 (Version 4)
Quarter: 2017Q1

REPORT INFORMATION
  Report Type: Spontaneous
  Country: DE (occurrence: DE)
  Receive Date: 20170106
  Receipt Date: 20170313
  Transmission Date: 20170428
  Serious: Yes (Disabling)
  Sender: FDA-Public Use
  Company Number: DE-ALLERGAN-1700158US

PATIENT
  Age: 63 Year
  Sex: Female

DRUGS (2)
  1. BOTOX [Suspect]
     Active Substance: ONABOTULINUMTOXINA
     Indication: ALOPECIA
     Dosage: 100 UNITS, SINGLE
     Route: 030
     Dates: start: 20160704, end: 20160704
  2. CHLORMADINON [Concomitant]
     Indication: MENOPAUSE
     Route: 065

REACTIONS (5)
  - Paralysis [Unknown]
  - Off label use [Unknown]
  - Tinnitus [Unknown]
  - Bedridden [Unknown]
  - Stress [Not Recovered/Not Resolved]

NARRATIVE: CASE EVENT DATE: 20160718
